FAERS Safety Report 4867776-0 (Version None)
Quarter: 2005Q4

REPORT INFORMATION
  Report Type: 
  Country: None (occurrence: None)
  Receive Date: 20051223
  Receipt Date: 20051223
  Transmission Date: 20060501
  Serious: No
  Sender: FDA-Public Use
  Company Number: None

PATIENT
  Age: 58 Year
  Sex: Female
  Weight: 73.9363 kg

DRUGS (2)
  1. BEXTRA [Suspect]
     Indication: OSTEOARTHRITIS
     Dosage: 10 MG   ONCE DAILY   PO
     Route: 048
     Dates: start: 20020601, end: 20041201
  2. BEXTRA [Suspect]
     Indication: SPINAL OSTEOARTHRITIS
     Dosage: 10 MG   ONCE DAILY   PO
     Route: 048
     Dates: start: 20020601, end: 20041201

REACTIONS (4)
  - AURA [None]
  - COGNITIVE DISORDER [None]
  - MEMORY IMPAIRMENT [None]
  - PETIT MAL EPILEPSY [None]
